FAERS Safety Report 13772511 (Version 2)
Quarter: 2017Q3

REPORT INFORMATION
  Report Type: Spontaneous
  Country: US (occurrence: US)
  Receive Date: 20170720
  Receipt Date: 20170725
  Transmission Date: 20171127
  Serious: No
  Sender: FDA-Public Use
  Company Number: US-GLAXOSMITHKLINE-US2017107794

PATIENT
  Age: 86 Year
  Sex: Female

DRUGS (4)
  1. VOLTAREN [Suspect]
     Active Substance: DICLOFENAC SODIUM
     Indication: PAIN IN EXTREMITY
  2. VOLTAREN [Suspect]
     Active Substance: DICLOFENAC SODIUM
     Indication: ARTHRALGIA
  3. VOLTAREN [Suspect]
     Active Substance: DICLOFENAC SODIUM
     Indication: ARTHRALGIA
  4. VOLTAREN [Suspect]
     Active Substance: DICLOFENAC SODIUM
     Indication: KNEE ARTHROPLASTY
     Dosage: UNK
     Dates: start: 20170606

REACTIONS (6)
  - Inappropriate schedule of drug administration [Unknown]
  - Drug ineffective for unapproved indication [Unknown]
  - Product use in unapproved indication [Unknown]
  - Off label use [Unknown]
  - Drug effective for unapproved indication [Unknown]
  - Rash [Recovering/Resolving]
